FAERS Safety Report 7982247-0 (Version None)
Quarter: 2011Q4

REPORT INFORMATION
  Report Type: 
  Country: None (occurrence: None)
  Receive Date: 20111215
  Receipt Date: 20111215
  Transmission Date: 20120403
  Serious: Yes (Hospitalization, Other)
  Sender: FDA-Public Use
  Company Number: None

PATIENT
  Age: 51 Year
  Sex: Male
  Weight: 61.688 kg

DRUGS (1)
  1. DDAVP [Suspect]

REACTIONS (4)
  - AMNESIA [None]
  - OSTEOPOROSIS [None]
  - HYPONATRAEMIA [None]
  - CORONARY ARTERY DISEASE [None]
